FAERS Safety Report 18555287 (Version 4)
Quarter: 2020Q4

REPORT INFORMATION
  Report Type: Spontaneous
  Country: US (occurrence: US)
  Receive Date: 20201127
  Receipt Date: 20201215
  Transmission Date: 20210114
  Serious: Yes (Other)
  Sender: FDA-Public Use
  Company Number: US-ASTRAZENECA-2020SF57736

PATIENT
  Sex: Female

DRUGS (5)
  1. BYDUREON BCISE [Suspect]
     Active Substance: EXENATIDE
     Route: 065
     Dates: start: 2019
  2. GABAPENTIN. [Concomitant]
     Active Substance: GABAPENTIN
     Dosage: 200 MG IN THE MORNING AND 200 MG IN THE EVENING
     Route: 065
  3. METFORMIN [Concomitant]
     Active Substance: METFORMIN HYDROCHLORIDE
     Route: 065
  4. BYDUREON [Suspect]
     Active Substance: EXENATIDE
     Dosage: DOSE AND FREQUENCY UNKNOWN
     Route: 065
  5. GABAPENTIN. [Concomitant]
     Active Substance: GABAPENTIN
     Route: 065

REACTIONS (11)
  - Injection site mass [Unknown]
  - Neuropathy peripheral [Unknown]
  - Arthritis [Not Recovered/Not Resolved]
  - Tic [Unknown]
  - Dementia [Unknown]
  - Incorrect dose administered by device [Unknown]
  - Body fat disorder [Unknown]
  - Dyskinesia [Unknown]
  - Device leakage [Unknown]
  - Weight increased [Recovering/Resolving]
  - Weight decreased [Not Recovered/Not Resolved]
